FAERS Safety Report 24662764 (Version 1)
Quarter: 2024Q4

REPORT INFORMATION
  Report Type: Spontaneous
  Country: GB (occurrence: GB)
  Receive Date: 20241126
  Receipt Date: 20241126
  Transmission Date: 20250115
  Serious: No
  Sender: ALKEM
  Company Number: None

PATIENT
  Age: 43 Year
  Sex: Female
  Weight: 83 kg

DRUGS (5)
  1. COLESEVELAM HYDROCHLORIDE [Suspect]
     Active Substance: COLESEVELAM HYDROCHLORIDE
     Indication: Bile acid malabsorption
     Dosage: 3750 MILLIGRAM, QD (TABLET)
     Route: 065
     Dates: start: 20230201, end: 20240205
  2. DESOGESTREL [Concomitant]
     Active Substance: DESOGESTREL
     Indication: Premenstrual dysphoric disorder
     Dosage: UNK
     Route: 065
  3. FEXOFENADINE [Concomitant]
     Active Substance: FEXOFENADINE HYDROCHLORIDE
     Indication: Product used for unknown indication
     Dosage: UNK
     Route: 065
  4. MIRTAZAPINE [Concomitant]
     Active Substance: MIRTAZAPINE
     Indication: Product used for unknown indication
     Dosage: UNK
     Route: 065
  5. Sertraline 100m [Concomitant]
     Indication: Product used for unknown indication
     Dosage: UNK
     Route: 065

REACTIONS (3)
  - Gastrointestinal pain [Not Recovered/Not Resolved]
  - Dyspnoea [Unknown]
  - Abdominal distension [Unknown]

NARRATIVE: CASE EVENT DATE: 20231101
